FAERS Safety Report 14733376 (Version 1)
Quarter: 2018Q2

REPORT INFORMATION
  Report Type: Spontaneous
  Country: US (occurrence: US)
  Receive Date: 20180403
  Receipt Date: 20180403
  Transmission Date: 20180711
  Serious: Yes (Hospitalization)
  Sender: FDA-Public Use
  Company Number: None

PATIENT
  Age: 60 Year
  Sex: Male

DRUGS (10)
  1. TIZANIDINE. [Concomitant]
     Active Substance: TIZANIDINE
  2. PROAIR HFA [Concomitant]
     Active Substance: ALBUTEROL SULFATE
  3. PREDNISONE. [Concomitant]
     Active Substance: PREDNISONE
  4. TAMSULOSIN [Concomitant]
     Active Substance: TAMSULOSIN
  5. ZYTIGA [Suspect]
     Active Substance: ABIRATERONE ACETATE
     Indication: PROSTATE CANCER
     Dosage: SEE SEC 5
     Route: 048
     Dates: start: 20180217
  6. ATORVASTATIN [Concomitant]
     Active Substance: ATORVASTATIN
  7. SPIRIVA [Concomitant]
     Active Substance: TIOTROPIUM BROMIDE MONOHYDRATE
  8. HYDROCHLOROT [Concomitant]
     Active Substance: HYDROCHLOROTHIAZIDE
     Indication: PROSTATE CANCER
     Dates: start: 20180217
  9. BUDESONIDE. [Concomitant]
     Active Substance: BUDESONIDE
  10. PANTOPRAZOLE [Concomitant]
     Active Substance: PANTOPRAZOLE

REACTIONS (1)
  - Cardiac arrest [None]
